FAERS Safety Report 16244884 (Version 1)
Quarter: 2019Q2

REPORT INFORMATION
  Report Type: Spontaneous
  Country: US (occurrence: US)
  Receive Date: 20190426
  Receipt Date: 20190426
  Transmission Date: 20190711
  Serious: Yes (Death)
  Sender: FDA-Public Use
  Company Number: US-BAYER-2019-079279

PATIENT
  Sex: Female

DRUGS (1)
  1. ALEVE [Suspect]
     Active Substance: NAPROXEN SODIUM
     Indication: PAIN
     Dosage: SHE TOOK THEM BY THE HANDFUL

REACTIONS (4)
  - Overdose [None]
  - Gastric disorder [Fatal]
  - Pain [Unknown]
  - Drug ineffective [Unknown]
